FAERS Safety Report 9625754 (Version 1)
Quarter: 2013Q4

REPORT INFORMATION
  Report Type: Spontaneous
  Country: DE (occurrence: DE)
  Receive Date: 20131016
  Receipt Date: 20131016
  Transmission Date: 20140711
  Serious: Yes (Death, Hospitalization, Disabling, Congenital Anomaly, Other)
  Sender: FDA-Public Use
  Company Number: GXKR2013DE003266

PATIENT
  Sex: 0

DRUGS (2)
  1. CITALOPRAM [Suspect]
     Dosage: MATERNAL DOSE: 10 [MG/D ]
     Route: 064
  2. FOLIO [Concomitant]
     Dosage: MATERNAL DOSE: 0.4 [MG/D ]
     Route: 064

REACTIONS (6)
  - Holoprosencephaly [Fatal]
  - Congenital central nervous system anomaly [Not Recovered/Not Resolved]
  - Cleft lip and palate [Unknown]
  - Hyperbilirubinaemia neonatal [Recovered/Resolved]
  - Convulsion neonatal [Not Recovered/Not Resolved]
  - Temperature regulation disorder [Recovered/Resolved]
